FAERS Safety Report 23440666 (Version 1)
Quarter: 2024Q1

REPORT INFORMATION
  Report Type: Other
  Country: CA (occurrence: None)
  Receive Date: 20240125
  Receipt Date: 20240125
  Transmission Date: 20240409
  Serious: No
  Sender: FDA-Public Use
  Company Number: CA-ROCHE-2755904

PATIENT
  Age: 51 Year
  Sex: Male
  Weight: 77 kg

DRUGS (6)
  1. OCREVUS [Suspect]
     Active Substance: OCRELIZUMAB
     Indication: Relapsing-remitting multiple sclerosis
     Dosage: 300 MG AT DAY 0 AND 14, THEN 600 MG EVERY 6 MONTH
     Route: 042
     Dates: start: 20210121
  2. OCREVUS [Suspect]
     Active Substance: OCRELIZUMAB
     Route: 042
  3. PERINDOPRIL [Concomitant]
     Active Substance: PERINDOPRIL
  4. CRESTOR [Concomitant]
     Active Substance: ROSUVASTATIN CALCIUM
  5. OMEGA 3 [Concomitant]
     Active Substance: CAPSAICIN
  6. PREGABALIN [Concomitant]
     Active Substance: PREGABALIN

REACTIONS (14)
  - Infusion related reaction [Recovering/Resolving]
  - Infusion related reaction [Recovered/Resolved]
  - Limb discomfort [Recovering/Resolving]
  - Tremor [Recovered/Resolved]
  - Chills [Recovered/Resolved]
  - Infusion related reaction [Unknown]
  - Depression [Unknown]
  - Dyspepsia [Unknown]
  - Fall [Unknown]
  - Monoplegia [Recovered/Resolved]
  - Fatigue [Not Recovered/Not Resolved]
  - Sensory loss [Not Recovered/Not Resolved]
  - Restless legs syndrome [Unknown]
  - COVID-19 [Recovering/Resolving]

NARRATIVE: CASE EVENT DATE: 20210121
